FAERS Safety Report 4613453-0 (Version None)
Quarter: 2005Q1

REPORT INFORMATION
  Report Type: 
  Country: None (occurrence: None)
  Receive Date: 20050316
  Receipt Date: 20050302
  Transmission Date: 20050727
  Serious: Yes (Hospitalization)
  Sender: FDA-Public Use
  Company Number: FR-2004-031682

PATIENT
  Age: 18 Year
  Sex: Male

DRUGS (5)
  1. SOTALOL HYDROCHLORIDE [Suspect]
     Indication: ARRHYTHMIA
     Dosage: SEE IMAGE
     Route: 048
     Dates: start: 20040101, end: 20040101
  2. SOTALOL HYDROCHLORIDE [Suspect]
     Indication: ARRHYTHMIA
     Dosage: SEE IMAGE
     Route: 048
     Dates: start: 20040101
  3. SINTROM [Suspect]
     Indication: ARRHYTHMIA
     Dates: start: 19910101, end: 20040101
  4. SECTRAL [Suspect]
     Indication: ARRHYTHMIA
     Dates: start: 19910101, end: 20040101
  5. DIGOXIN [Concomitant]

REACTIONS (4)
  - DISEASE RECURRENCE [None]
  - DRY EYE [None]
  - PSORIASIS [None]
  - PURPURA [None]
